FAERS Safety Report 7283347-3 (Version None)
Quarter: 2011Q1

REPORT INFORMATION
  Report Type: 
  Country: None (occurrence: None)
  Receive Date: 20110204
  Receipt Date: 20110204
  Transmission Date: 20110831
  Serious: Yes (Life-Threatening)
  Sender: FDA-Public Use
  Company Number: None

PATIENT
  Age: 30 Year
  Sex: Male
  Weight: 74.3899 kg

DRUGS (2)
  1. CARISOPRODOL [Suspect]
     Indication: MUSCLE SPASMS
     Dosage: 1 BY MOUTH EVERY 6 TO 8 HOURS MOUTH
     Route: 048
     Dates: start: 20110103, end: 20110105
  2. HYDROCODONE BITARTRATE + ACETAMINOPHEN [Suspect]
     Indication: PAIN
     Dosage: 1 BY MOUTH EVER 4 TO 6 HOURS MOUTH
     Route: 048
     Dates: start: 20110103, end: 20110105

REACTIONS (8)
  - MENTAL DISORDER [None]
  - AGITATION [None]
  - DISORIENTATION [None]
  - MEMORY IMPAIRMENT [None]
  - CONFUSIONAL STATE [None]
  - COORDINATION ABNORMAL [None]
  - TREMOR [None]
  - SPEECH DISORDER [None]
